FAERS Safety Report 22039540 (Version 1)
Quarter: 2023Q1

REPORT INFORMATION
  Report Type: Spontaneous
  Country: US (occurrence: None)
  Receive Date: 20230226
  Receipt Date: 20230226
  Transmission Date: 20230417
  Serious: No
  Sender: FDA-Public Use
  Company Number: None

PATIENT
  Age: 25 Year
  Sex: Female
  Weight: 67.5 kg

DRUGS (1)
  1. VYVANSE [Suspect]
     Active Substance: LISDEXAMFETAMINE DIMESYLATE
     Indication: Attention deficit hyperactivity disorder
     Dosage: FREQUENCY : DAILY;?
     Route: 048
     Dates: end: 20230206

REACTIONS (6)
  - Fatigue [None]
  - Migraine [None]
  - Myalgia [None]
  - Inability to afford medication [None]
  - Therapy interrupted [None]
  - Drug ineffective [None]

NARRATIVE: CASE EVENT DATE: 20230106
